FAERS Safety Report 4524661-1 (Version None)
Quarter: 2004Q4

REPORT INFORMATION
  Report Type: 
  Country: None (occurrence: None)
  Receive Date: 20041211
  Receipt Date: 20041104
  Transmission Date: 20050328
  Serious: Yes (Other)
  Sender: FDA-Public Use
  Company Number: US-MERCK-0411USA01013

PATIENT
  Age: 70 Year
  Sex: Female
  Weight: 59 kg

DRUGS (2)
  1. ZETIA [Suspect]
     Indication: DYSLIPIDAEMIA
     Route: 048
     Dates: start: 20041001, end: 20040101
  2. ZETIA [Suspect]
     Route: 048
     Dates: start: 20040101, end: 20041101

REACTIONS (2)
  - CIRCUMORAL OEDEMA [None]
  - SWELLING FACE [None]
